FAERS Safety Report 7258028-2 (Version None)
Quarter: 2011Q1

REPORT INFORMATION
  Report Type: 
  Country: None (occurrence: None)
  Receive Date: 20110129
  Receipt Date: 20100616
  Transmission Date: 20110831
  Serious: No
  Sender: FDA-Public Use
  Company Number: US-ABBOTT-10P-163-0651678-00

PATIENT
  Age: 47 Year
  Sex: Female

DRUGS (14)
  1. LYRICA [Concomitant]
     Indication: FIBROMYALGIA
  2. CO Q-10 [Concomitant]
     Indication: PRODUCT USED FOR UNKNOWN INDICATION
  3. LOVAZA [Concomitant]
     Indication: CARDIAC DISORDER
  4. LOVAZA [Concomitant]
     Indication: BLOOD CHOLESTEROL
  5. HEART HEALTH SUPPLEMENT [Concomitant]
     Indication: PRODUCT USED FOR UNKNOWN INDICATION
  6. METHOTREXATE [Concomitant]
     Indication: PRODUCT USED FOR UNKNOWN INDICATION
     Dosage: 3 TAB EVERY 12 HRS, 3 DOSES ON MON, WED + FRI, TWICE EACH OF THESE DAYS
  7. LOVAZA [Concomitant]
     Indication: AFFECTIVE DISORDER
  8. HUMIRA [Suspect]
     Indication: PSORIASIS
     Dates: start: 20090101
  9. PRAVASTATIN [Concomitant]
     Indication: BLOOD CHOLESTEROL
  10. MULTIVITAMIN [Concomitant]
     Indication: PRODUCT USED FOR UNKNOWN INDICATION
  11. METHOCARBAMOL [Concomitant]
     Indication: PRODUCT USED FOR UNKNOWN INDICATION
     Dosage: 2 CAPSULES TWICE A DAY
  12. AMBIEN [Concomitant]
     Indication: INSOMNIA
     Dosage: ONCE AT NIGHT AS NEEDED
  13. PROPO-N-APAP [Concomitant]
     Indication: PAIN
     Dosage: 100/650 MG UP TO FOUR TIMES A DAY
  14. XANAX [Concomitant]
     Indication: INSOMNIA
     Dosage: AT NIGHT

REACTIONS (3)
  - FURUNCLE [None]
  - PYREXIA [None]
  - PAIN [None]
